FAERS Safety Report 10368847 (Version 1)
Quarter: 2014Q3

REPORT INFORMATION
  Report Type: Spontaneous
  Country: EC (occurrence: EC)
  Receive Date: 20140807
  Receipt Date: 20140807
  Transmission Date: 20150326
  Serious: Yes (Death)
  Sender: FDA-Public Use
  Company Number: EC-PFIZER INC-2014219049

PATIENT
  Age: 69 Year
  Sex: Male

DRUGS (1)
  1. LIPITOR [Suspect]
     Active Substance: ATORVASTATIN CALCIUM
     Indication: HYPERCHOLESTEROLAEMIA
     Dosage: 20 MG, 1X/DAY
     Route: 048

REACTIONS (1)
  - Death [Fatal]
